FAERS Safety Report 14699977 (Version 1)
Quarter: 2018Q1

REPORT INFORMATION
  Report Type: Spontaneous
  Country: US (occurrence: US)
  Receive Date: 20180329
  Receipt Date: 20180329
  Transmission Date: 20180509
  Serious: Yes (Other)
  Sender: FDA-Public Use
  Company Number: None

PATIENT
  Age: 57 Year
  Sex: Female
  Weight: 105.3 kg

DRUGS (18)
  1. HYDROXYCHLOROQUINE [Concomitant]
     Active Substance: HYDROXYCHLOROQUINE
  2. LOSARTAN. [Concomitant]
     Active Substance: LOSARTAN
  3. PROAIR HFA [Concomitant]
     Active Substance: ALBUTEROL SULFATE
  4. CETRIZINE [Concomitant]
     Active Substance: CETIRIZINE HYDROCHLORIDE
  5. FLUTICASONE PROPIONATE. [Concomitant]
     Active Substance: FLUTICASONE PROPIONATE
  6. CARISOPRODOL. [Concomitant]
     Active Substance: CARISOPRODOL
  7. CRANBERRY PILLS [Concomitant]
  8. FLUOXETINE HCL [Concomitant]
     Active Substance: FLUOXETINE HYDROCHLORIDE
  9. OMEPRAZOLE DR [Concomitant]
     Active Substance: OMEPRAZOLE
  10. HYDROCODONE-ACETAMINOPHEN [Concomitant]
     Active Substance: ACETAMINOPHEN\HYDROCODONE
  11. IPRATROPIUM BROMIDE. [Concomitant]
     Active Substance: IPRATROPIUM BROMIDE
  12. CITRIZINE [Concomitant]
  13. TYLENOL [Concomitant]
     Active Substance: ACETAMINOPHEN
  14. FLOVENT HFA [Concomitant]
     Active Substance: FLUTICASONE PROPIONATE
  15. ALPRAZOLAM ER [Concomitant]
     Active Substance: ALPRAZOLAM
  16. FISH OIL [Concomitant]
     Active Substance: FISH OIL
  17. MINOCIN [Suspect]
     Active Substance: MINOCYCLINE HYDROCHLORIDE
     Indication: RHEUMATOID ARTHRITIS
     Dosage: ?          QUANTITY:2 CAPSULE(S);?
     Route: 048
     Dates: start: 20180305, end: 20180329
  18. ALBUTEROL SULFATE. [Concomitant]
     Active Substance: ALBUTEROL SULFATE

REACTIONS (1)
  - Tremor [None]

NARRATIVE: CASE EVENT DATE: 20180327
